FAERS Safety Report 9235397 (Version 1)
Quarter: 2013Q2

REPORT INFORMATION
  Report Type: Spontaneous
  Country: US (occurrence: None)
  Receive Date: 20130416
  Receipt Date: 20130416
  Transmission Date: 20140414
  Serious: Yes (Disabling)
  Sender: FDA-Public Use
  Company Number: None

PATIENT
  Age: 76 Year
  Sex: Female
  Weight: 63.5 kg

DRUGS (1)
  1. FLUTICASONE PROPIONATE [Suspect]
     Dates: start: 20130307, end: 20100310

REACTIONS (2)
  - Anosmia [None]
  - Ageusia [None]
